FAERS Safety Report 6805156-9 (Version None)
Quarter: 2010Q2

REPORT INFORMATION
  Report Type: 
  Country: None (occurrence: None)
  Receive Date: 20100628
  Receipt Date: 20071005
  Transmission Date: 20101027
  Serious: Yes (Other)
  Sender: FDA-Public Use
  Company Number: US-PFIZER INC-2007071680

PATIENT
  Sex: Male
  Weight: 86.2 kg

DRUGS (1)
  1. SUTENT [Suspect]
     Indication: RENAL CANCER
     Dosage: QOD
     Route: 048
     Dates: start: 20061113

REACTIONS (1)
  - GASTROINTESTINAL HAEMORRHAGE [None]
